APPROVED DRUG PRODUCT: BUMETANIDE
Active Ingredient: BUMETANIDE
Strength: 1MG
Dosage Form/Route: TABLET;ORAL
Application: A215362 | Product #002 | TE Code: AB
Applicant: MSN LABORATORIES PRIVATE LTD
Approved: Feb 5, 2026 | RLD: No | RS: No | Type: RX